FAERS Safety Report 8343932-4 (Version None)
Quarter: 2012Q1

REPORT INFORMATION
  Report Type: 
  Country: None (occurrence: None)
  Receive Date: 20120330
  Receipt Date: 20110406
  Transmission Date: 20120608
  Serious: Yes (Other)
  Sender: FDA-Public Use
  Company Number: PHHY2011US29796

PATIENT
  Age: 84 Year
  Sex: Female
  Weight: 50.8 kg

DRUGS (3)
  1. ALPRAZOLAM [Concomitant]
  2. EXELON [Suspect]
     Indication: DEMENTIA ALZHEIMER'S TYPE
     Dosage: 9.5 MG, DAILY, TRANSDERMAL
     Route: 062
     Dates: start: 20100311
  3. LEXAPRO [Concomitant]

REACTIONS (3)
  - NAUSEA [None]
  - WRONG TECHNIQUE IN DRUG USAGE PROCESS [None]
  - CONFUSIONAL STATE [None]
